FAERS Safety Report 13989736 (Version 7)
Quarter: 2018Q1

REPORT INFORMATION
  Report Type: Spontaneous
  Country: DE (occurrence: DE)
  Receive Date: 20170920
  Receipt Date: 20180319
  Transmission Date: 20180508
  Serious: Yes (Hospitalization)
  Sender: FDA-Public Use
  Company Number: DE-ROCHE-1993850

PATIENT
  Age: 53 Year
  Sex: Male

DRUGS (6)
  1. XOLAIR [Suspect]
     Active Substance: OMALIZUMAB
     Indication: ASTHMA
     Dosage: 2X150MG
     Route: 058
  2. PREDNISOLON [Concomitant]
     Active Substance: PREDNISOLONE
     Indication: SINUSITIS
     Dosage: 7 MG, UNK
     Route: 065
  3. XOLAIR [Suspect]
     Active Substance: OMALIZUMAB
     Indication: ASTHMA
  4. XOLAIR [Suspect]
     Active Substance: OMALIZUMAB
     Indication: CHRONIC EOSINOPHILIC RHINOSINUSITIS
     Dosage: 2 DF, QD ONE SINGLE TIME
     Route: 058
     Dates: start: 20170810, end: 20170810
  5. FLUTIFORM [Concomitant]
     Active Substance: FLUTICASONE PROPIONATE\FORMOTEROL FUMARATE
     Indication: SINUSITIS
     Route: 065
  6. DYMISTA [Concomitant]
     Active Substance: AZELASTINE HYDROCHLORIDE\FLUTICASONE PROPIONATE
     Indication: SINUSITIS
     Dosage: 1 DF, BID
     Route: 065

REACTIONS (4)
  - Coronary artery disease [Recovered/Resolved]
  - Coronary artery stenosis [Unknown]
  - Angina unstable [Recovered/Resolved]
  - Chest pain [Unknown]

NARRATIVE: CASE EVENT DATE: 20170811
